FAERS Safety Report 15145803 (Version 1)
Quarter: 2018Q3

REPORT INFORMATION
  Report Type: Report from Study
  Country: IT (occurrence: IT)
  Receive Date: 20180714
  Receipt Date: 20180714
  Transmission Date: 20181010
  Serious: Yes (Other)
  Sender: FDA-Public Use
  Company Number: IT-TEVA-2018-IT-926004

PATIENT
  Age: 77 Year
  Sex: Female

DRUGS (7)
  1. SIVASTIN 10 MG COMPRESSE RIVESTITE CON FILM [Concomitant]
     Indication: HYPERCHOLESTEROLAEMIA
     Route: 048
  2. ZANEDIP 10 MG COMPRESSE RIVESTITE CON FILM [Concomitant]
     Indication: HYPERTENSION
     Route: 048
  3. LOBIVON 5 MG COMPRESSE [Concomitant]
     Indication: HYPERTENSION
     Route: 048
  4. LASIX [Concomitant]
     Active Substance: FUROSEMIDE
     Indication: HYPERTENSION
     Route: 048
  5. ENOXAPARIN SODIUM. [Concomitant]
     Active Substance: ENOXAPARIN SODIUM
     Indication: THROMBOSIS PROPHYLAXIS
     Route: 058
  6. AMOXICILLINA/ACIDO CLAVULANICO [Suspect]
     Active Substance: AMOXICILLIN\CLAVULANIC ACID
     Indication: ERYSIPELAS
     Dosage: 2 DOSAGE FORMS DAILY;
     Route: 048
     Dates: start: 20180604, end: 20180612
  7. ARVENUM 500 MG COMPRESSE RIVESTITE CON FILM [Concomitant]
     Indication: PERIPHERAL VENOUS DISEASE
     Route: 048

REACTIONS (3)
  - Pruritus [Recovering/Resolving]
  - Haematoma [Recovering/Resolving]
  - Erythema [Recovering/Resolving]

NARRATIVE: CASE EVENT DATE: 20180610
